FAERS Safety Report 23470430 (Version 2)
Quarter: 2024Q1

REPORT INFORMATION
  Report Type: Spontaneous
  Country: US (occurrence: US)
  Receive Date: 20240202
  Receipt Date: 20240226
  Transmission Date: 20240410
  Serious: Yes (Death, Hospitalization, Other)
  Sender: FDA-Public Use
  Company Number: US-PFIZER INC-202400031233

PATIENT
  Sex: Male
  Weight: 72.57 kg

DRUGS (3)
  1. VYNDAMAX [Suspect]
     Active Substance: TAFAMIDIS
     Indication: Amyloidosis
     Dosage: 61 MG, 1X/DAY
     Dates: start: 2019, end: 20240119
  2. CALCITRIOL [Concomitant]
     Active Substance: CALCITRIOL
     Indication: Cardiac disorder
     Dosage: 0.25 MG
  3. CALCITRIOL [Concomitant]
     Active Substance: CALCITRIOL
     Indication: Blood pressure abnormal

REACTIONS (2)
  - Cardiac amyloidosis [Fatal]
  - Prostate cancer [Unknown]
